FAERS Safety Report 25419140 (Version 1)
Quarter: 2025Q2

REPORT INFORMATION
  Report Type: Spontaneous
  Country: SE (occurrence: SE)
  Receive Date: 20250610
  Receipt Date: 20250610
  Transmission Date: 20250717
  Serious: Yes (Hospitalization, Other)
  Sender: AMGEN
  Company Number: SE-AMGEN-SWESP2025109274

PATIENT

DRUGS (1)
  1. ADALIMUMAB [Suspect]
     Active Substance: ADALIMUMAB
     Indication: Rheumatoid arthritis
     Route: 065

REACTIONS (4)
  - Cardiovascular disorder [Unknown]
  - Embolism venous [Unknown]
  - Neoplasm malignant [Unknown]
  - Infection [Unknown]
